FAERS Safety Report 8780357 (Version 1)
Quarter: 2012Q4

REPORT INFORMATION
  Report Type: Spontaneous
  Country: US (occurrence: None)
  Receive Date: 20120905
  Receipt Date: 20120905
  Transmission Date: 20130627
  Serious: Yes (Other)
  Sender: FDA-Public Use
  Company Number: None

PATIENT
  Age: 65 Year
  Sex: Female
  Weight: 80.29 kg

DRUGS (1)
  1. DOXYCYCLINE HYCLATE [Suspect]
     Dates: start: 20120704

REACTIONS (7)
  - Blister [None]
  - Skin exfoliation [None]
  - Vulvovaginal discomfort [None]
  - Decreased appetite [None]
  - Headache [None]
  - Fatigue [None]
  - Throat irritation [None]
